FAERS Safety Report 24936984 (Version 1)
Quarter: 2025Q1

REPORT INFORMATION
  Report Type: Spontaneous
  Country: US (occurrence: US)
  Receive Date: 20250206
  Receipt Date: 20250206
  Transmission Date: 20250409
  Serious: No
  Sender: MYLAN
  Company Number: US-MYLANLABS-2025M1008632

PATIENT
  Age: 82 Year
  Sex: Female

DRUGS (1)
  1. LATANOPROST [Suspect]
     Active Substance: LATANOPROST
     Indication: Product used for unknown indication
     Dosage: 1 GTT DROPS, PM (ONCE A DAY AT NIGHT BEFORE BEDTIME 1 DROP IN HER RIGHT AND LEF EYE)
     Route: 047

REACTIONS (2)
  - Rhinorrhoea [Unknown]
  - Pruritus [Recovered/Resolved]
